FAERS Safety Report 4727430-2 (Version None)
Quarter: 2005Q3

REPORT INFORMATION
  Report Type: 
  Country: None (occurrence: None)
  Receive Date: 20050727
  Receipt Date: 20050727
  Transmission Date: 20060218
  Serious: Yes (Hospitalization)
  Sender: FDA-Public Use
  Company Number: None

PATIENT
  Age: 37 Year
  Sex: Male
  Weight: 59.4212 kg

DRUGS (11)
  1. LEVOFLOXACIN [Suspect]
     Indication: PNEUMONIA
     Dosage: 500 MG PO QID
     Route: 048
     Dates: start: 20050217
  2. PHOSLO [Concomitant]
  3. DAPSONE [Concomitant]
  4. VIDEX EC [Concomitant]
  5. INDINAVIR [Concomitant]
  6. 3TC [Concomitant]
  7. FLUCONAZOLE [Concomitant]
  8. PREVACID [Concomitant]
  9. PERCOCET [Concomitant]
  10. PHENERGAN HCL [Concomitant]
  11. VICODIN [Concomitant]

REACTIONS (4)
  - CONFUSIONAL STATE [None]
  - DELIRIUM [None]
  - HALLUCINATION, AUDITORY [None]
  - PSYCHOTIC DISORDER [None]
